FAERS Safety Report 17932504 (Version 2)
Quarter: 2020Q2

REPORT INFORMATION
  Report Type: Report from Study
  Country: None (occurrence: US)
  Receive Date: 20200624
  Receipt Date: 20200630
  Transmission Date: 20200714
  Serious: Yes (Other)
  Sender: FDA-Public Use
  Company Number: US-ABBVIE-20K-163-3457141-00

PATIENT
  Sex: Female

DRUGS (21)
  1. HUMIRA [Suspect]
     Active Substance: ADALIMUMAB
     Indication: PSORIASIS
     Route: 058
  2. HUMIRA [Suspect]
     Active Substance: ADALIMUMAB
     Indication: DRUG LEVEL THERAPEUTIC
  3. TEMOVATE [Concomitant]
     Active Substance: CLOBETASOL PROPIONATE
     Indication: PRODUCT USED FOR UNKNOWN INDICATION
  4. CELEBREX [Concomitant]
     Active Substance: CELECOXIB
     Indication: PRODUCT USED FOR UNKNOWN INDICATION
  5. ATARAX [Concomitant]
     Active Substance: HYDROXYZINE HYDROCHLORIDE
     Indication: PRODUCT USED FOR UNKNOWN INDICATION
  6. LORTAB [Concomitant]
     Active Substance: ACETAMINOPHEN\HYDROCODONE BITARTRATE
     Indication: PRODUCT USED FOR UNKNOWN INDICATION
  7. HUMIRA [Suspect]
     Active Substance: ADALIMUMAB
     Indication: PSORIASIS
     Route: 058
     Dates: start: 200701
  8. HUMIRA [Suspect]
     Active Substance: ADALIMUMAB
     Route: 058
  9. MTX [Suspect]
     Active Substance: METHOTREXATE SODIUM
     Indication: ARTHROPATHY
     Route: 065
     Dates: start: 201508, end: 20180205
  10. LISINOPRIL HYDROCHLOROTHIOAZIDE 1A PHARMA [Concomitant]
     Indication: PRODUCT USED FOR UNKNOWN INDICATION
  11. MTX [Suspect]
     Active Substance: METHOTREXATE SODIUM
     Route: 065
  12. FLUOCINOLONE ACETONIDE. [Concomitant]
     Active Substance: FLUOCINOLONE ACETONIDE
     Indication: PRODUCT USED FOR UNKNOWN INDICATION
  13. XANAX [Concomitant]
     Active Substance: ALPRAZOLAM
     Indication: PRODUCT USED FOR UNKNOWN INDICATION
  14. SOMA [Concomitant]
     Active Substance: CARISOPRODOL
     Indication: PRODUCT USED FOR UNKNOWN INDICATION
  15. MTX [Suspect]
     Active Substance: METHOTREXATE SODIUM
     Route: 065
  16. FOLVITE [Concomitant]
     Active Substance: FOLIC ACID
     Indication: PRODUCT USED FOR UNKNOWN INDICATION
  17. LORTAB [Concomitant]
     Active Substance: ACETAMINOPHEN\HYDROCODONE BITARTRATE
     Indication: PRODUCT USED FOR UNKNOWN INDICATION
  18. HUMIRA [Suspect]
     Active Substance: ADALIMUMAB
     Indication: PSORIATIC ARTHROPATHY
  19. HUMIRA [Suspect]
     Active Substance: ADALIMUMAB
     Indication: PSORIASIS
  20. CORTICOSTEROIDS [Concomitant]
     Active Substance: CORTICOSTEROID NOS
     Indication: PRODUCT USED FOR UNKNOWN INDICATION
  21. PHENTERMINE W/TOPIRAMATE [Concomitant]
     Active Substance: PHENTERMINE HYDROCHLORIDE\TOPIRAMATE
     Indication: PRODUCT USED FOR UNKNOWN INDICATION

REACTIONS (28)
  - Dermatitis contact [Unknown]
  - Psoriasis [Recovering/Resolving]
  - Papule [Unknown]
  - Macule [Unknown]
  - Gastric bypass [Unknown]
  - Influenza [Unknown]
  - Skin irritation [Unknown]
  - Seborrhoeic keratosis [Unknown]
  - Stress [Unknown]
  - Weight increased [Unknown]
  - Myalgia [Unknown]
  - Joint stiffness [Recovering/Resolving]
  - Skin hyperpigmentation [Unknown]
  - Upper respiratory tract infection [Recovering/Resolving]
  - Spinal operation [Unknown]
  - Decreased appetite [Unknown]
  - Melanocytic naevus [Unknown]
  - Arthralgia [Unknown]
  - Therapeutic product effect incomplete [Unknown]
  - Pruritus [Unknown]
  - Dry skin [Unknown]
  - Arthralgia [Recovering/Resolving]
  - Skin exfoliation [Unknown]
  - Psoriasis [Unknown]
  - Fatigue [Unknown]
  - Joint swelling [Recovered/Resolved]
  - Neurodermatitis [Unknown]
  - Nausea [Unknown]

NARRATIVE: CASE EVENT DATE: 2008
